FAERS Safety Report 14814660 (Version 1)
Quarter: 2018Q2

REPORT INFORMATION
  Report Type: Spontaneous
  Country: US (occurrence: US)
  Receive Date: 20180426
  Receipt Date: 20180426
  Transmission Date: 20180711
  Serious: Yes (Life-Threatening, Hospitalization, Other)
  Sender: FDA-Public Use
  Company Number: US-WEST-WARD PHARMACEUTICALS CORP.-US-H14001-18-03328

PATIENT
  Age: 40 Year
  Sex: Female

DRUGS (11)
  1. MILRINONE [Interacting]
     Active Substance: MILRINONE
     Indication: CEREBRAL VASOCONSTRICTION
     Route: 065
  2. MILRINONE [Interacting]
     Active Substance: MILRINONE
     Indication: CEREBRAL VASOCONSTRICTION
     Route: 065
  3. NORMAL SALINE [Concomitant]
     Active Substance: SODIUM CHLORIDE
     Indication: PRODUCT USED FOR UNKNOWN INDICATION
     Dosage: ()
     Route: 065
  4. VAZCULEP [Concomitant]
     Active Substance: PHENYLEPHRINE HYDROCHLORIDE
     Indication: PRODUCT USED FOR UNKNOWN INDICATION
     Dosage: ()
     Route: 042
  5. VAZCULEP [Concomitant]
     Active Substance: PHENYLEPHRINE HYDROCHLORIDE
     Dosage: ()
  6. LEVOPHED [Interacting]
     Active Substance: NOREPINEPHRINE BITARTRATE
     Indication: CEREBRAL VASOCONSTRICTION
     Dosage: ()
     Route: 065
  7. MILRINONE [Interacting]
     Active Substance: MILRINONE
     Indication: CEREBRAL VASOCONSTRICTION
     Dosage: INJECTED INTO PETROUS SEGMENT OF THE LEFT ICA
     Route: 013
  8. MILRINONE [Interacting]
     Active Substance: MILRINONE
     Indication: CEREBRAL VASOCONSTRICTION
     Dosage: INJECTED INTO THE V3 SEGMENT OF THE LEFT VERTEBRAL ARTERY
     Route: 013
  9. LEVOPHED [Interacting]
     Active Substance: NOREPINEPHRINE BITARTRATE
     Indication: CEREBRAL VASOCONSTRICTION
     Dosage: ()
  10. MILRINONE [Interacting]
     Active Substance: MILRINONE
     Indication: CEREBRAL VASOCONSTRICTION
     Route: 013
  11. MILRINONE [Suspect]
     Active Substance: MILRINONE
     Indication: CEREBRAL VASOCONSTRICTION
     Dosage: INJECTED INTO PETROUS SEGMENT OF THE RIGHT ICA
     Route: 013

REACTIONS (9)
  - Cardiogenic shock [Unknown]
  - Cardiac arrest [Unknown]
  - Ventricular extrasystoles [Unknown]
  - Torsade de pointes [Unknown]
  - Drug interaction [Unknown]
  - Off label use [Unknown]
  - Cardiomyopathy [Unknown]
  - Ventricular tachycardia [Unknown]
  - Incorrect route of drug administration [Unknown]
